FAERS Safety Report 20061116 (Version 12)
Quarter: 2022Q3

REPORT INFORMATION
  Report Type: Report from Study
  Country: US (occurrence: US)
  Receive Date: 20211112
  Receipt Date: 20220803
  Transmission Date: 20221026
  Serious: Yes (Other)
  Sender: FDA-Public Use
  Company Number: US-NOVARTISTESTPH-NVSC2021US256021

PATIENT
  Sex: Female
  Weight: 56.7 kg

DRUGS (2)
  1. OMNITROPE [Suspect]
     Active Substance: SOMATROPIN
     Indication: Product used for unknown indication
     Dosage: 5 MG, QD
     Route: 058
  2. NORDITROPIN [Concomitant]
     Active Substance: SOMATROPIN
     Indication: Product used for unknown indication
     Dosage: UNK (FLEXPRO PEN)
     Route: 065

REACTIONS (7)
  - Brain injury [Unknown]
  - Medical device site warmth [Unknown]
  - Insomnia [Unknown]
  - Malaise [Unknown]
  - Illness [Unknown]
  - Product preparation error [Unknown]
  - Product storage error [Unknown]
